FAERS Safety Report 5151532-2 (Version None)
Quarter: 2006Q4

REPORT INFORMATION
  Report Type: 
  Country: None (occurrence: None)
  Receive Date: 20061114
  Receipt Date: 20061114
  Transmission Date: 20070319
  Serious: Yes (Other)
  Sender: FDA-Public Use
  Company Number: None

PATIENT
  Sex: Female
  Weight: 110.6777 kg

DRUGS (1)
  1. ZOCOR [Suspect]
     Indication: LIPIDS INCREASED
     Dosage: 10MG  ONCE QD  PO
     Route: 048
     Dates: start: 20050211, end: 20060717

REACTIONS (3)
  - ARTHRALGIA [None]
  - ASTHENIA [None]
  - PARAESTHESIA [None]
